FAERS Safety Report 6854571-6 (Version None)
Quarter: 2010Q3

REPORT INFORMATION
  Report Type: 
  Country: None (occurrence: None)
  Receive Date: 20100717
  Receipt Date: 20080109
  Transmission Date: 20110219
  Serious: No
  Sender: FDA-Public Use
  Company Number: US-PFIZER INC-2008002942

PATIENT
  Sex: Female
  Weight: 77.1 kg

DRUGS (4)
  1. CHANTIX [Suspect]
     Indication: SMOKING CESSATION THERAPY
     Dates: start: 20071228
  2. NEXIUM [Concomitant]
  3. KEPPRA [Concomitant]
     Indication: CONVULSION
  4. PHENOBARBITAL TAB [Concomitant]
     Indication: CONVULSION

REACTIONS (4)
  - GASTROENTERITIS VIRAL [None]
  - INSOMNIA [None]
  - NAUSEA [None]
  - VOMITING [None]
